FAERS Safety Report 19383860 (Version 1)
Quarter: 2021Q2

REPORT INFORMATION
  Report Type: Report from Study
  Country: JP (occurrence: JP)
  Receive Date: 20210608
  Receipt Date: 20210608
  Transmission Date: 20210717
  Serious: Yes (Other)
  Sender: FDA-Public Use
  Company Number: JP-CELLTRION INC.-2020JP024391

PATIENT

DRUGS (6)
  1. CT?P13 [Suspect]
     Active Substance: INFLIXIMAB-DYYB
     Indication: CROHN^S DISEASE
     Dosage: 590 MG (WEIGHT: 59KG)
     Route: 041
     Dates: start: 20181028, end: 20181028
  2. CT?P13 [Suspect]
     Active Substance: INFLIXIMAB-DYYB
     Dosage: 580MG (WEIGHT: 58KG)
     Route: 041
     Dates: start: 20191017, end: 20191017
  3. CT?P13 [Suspect]
     Active Substance: INFLIXIMAB-DYYB
     Dosage: 600 MILLIGRAM  (WEIGHT: 60KG)
     Route: 041
     Dates: start: 20181216, end: 20181216
  4. CT?P13 [Suspect]
     Active Substance: INFLIXIMAB-DYYB
     Dosage: 600 MILLIGRAM (WEIGHT: 60KG)
     Route: 041
     Dates: start: 20201129, end: 20201129
  5. CT?P13 [Suspect]
     Active Substance: INFLIXIMAB-DYYB
     Dosage: 600 MILLIGRAM  (WEIGHT: 60KG)
     Route: 041
     Dates: start: 20190210, end: 20190210
  6. CT?P13 [Suspect]
     Active Substance: INFLIXIMAB-DYYB
     Dosage: 600 MILLIGRAM  (WEIGHT: 60KG)
     Route: 041
     Dates: start: 20190407, end: 20190407

REACTIONS (7)
  - Rhinorrhoea [Recovered/Resolved]
  - Infection [Recovered/Resolved]
  - Rash [Recovered/Resolved]
  - Anal abscess [Recovered/Resolved]
  - Seasonal allergy [Not Recovered/Not Resolved]
  - Overdose [Unknown]
  - Nasopharyngitis [Recovered/Resolved]

NARRATIVE: CASE EVENT DATE: 20190707
